FAERS Safety Report 10098717 (Version 2)
Quarter: 2014Q2

REPORT INFORMATION
  Report Type: Report from Study
  Country: IT (occurrence: IT)
  Receive Date: 20140423
  Receipt Date: 20140423
  Transmission Date: 20141212
  Serious: Yes (Other)
  Sender: FDA-Public Use
  Company Number: IT-BAXTER-2014BAX017928

PATIENT
  Age: 78 Year
  Sex: Female

DRUGS (7)
  1. NAVELBINE [Suspect]
     Indication: BREAST CANCER RECURRENT
     Dosage: WAS ADMINISTERED ON THE FIRST DAY OF EACH CYCLE
     Route: 042
  2. SODIO CLORURO 0,9% BAXTER [Suspect]
     Indication: BREAST CANCER RECURRENT
     Dosage: FOR OVER 90 MINUTES THE FIRST DOSE AND 60 MINUTES FOR SUBSEQUENT DOSES
     Route: 042
  3. TRASTUZUMAB [Suspect]
     Indication: BREAST CANCER RECURRENT
     Dosage: LOADING DOSE
     Route: 042
  4. TRASTUZUMAB [Suspect]
     Route: 042
  5. TRASTUZUMAB [Suspect]
     Dosage: LOADING DOSE
     Route: 042
  6. TRASTUZUMAB [Suspect]
     Route: 042
  7. DEXAMETHASONE [Suspect]
     Indication: PREMEDICATION
     Dosage: DURING FIRST THREE WEEKS OF THERAPY WITH TRASTUZUMAB - 4 MG OR 8 MG FOR AT LEAST THE FIRST 2 WEEKS O
     Route: 042

REACTIONS (2)
  - Cardiac failure congestive [Recovering/Resolving]
  - Ejection fraction decreased [Recovering/Resolving]
